FAERS Safety Report 23494010 (Version 2)
Quarter: 2024Q1

REPORT INFORMATION
  Report Type: Spontaneous
  Country: DK (occurrence: None)
  Receive Date: 20240207
  Receipt Date: 20240209
  Transmission Date: 20240410
  Serious: Yes (Hospitalization)
  Sender: FDA-Public Use
  Company Number: 2024A029564

PATIENT
  Age: 1 Month
  Sex: Male

DRUGS (1)
  1. NEXIUM [Suspect]
     Active Substance: ESOMEPRAZOLE MAGNESIUM
     Indication: Gastrooesophageal reflux disease
     Dosage: 10 MG, QD (STRENGTH: 10 MG)
     Dates: start: 202009, end: 202306

REACTIONS (1)
  - Iron deficiency [Recovered/Resolved]

NARRATIVE: CASE EVENT DATE: 20200901
